FAERS Safety Report 6763562-5 (Version None)
Quarter: 2010Q2

REPORT INFORMATION
  Report Type: 
  Country: None (occurrence: None)
  Receive Date: 20100610
  Receipt Date: 20100604
  Transmission Date: 20101027
  Serious: Yes (Life-Threatening, Hospitalization, Other)
  Sender: FDA-Public Use
  Company Number: PHHY2010ES10950

PATIENT
  Age: 61 Year
  Sex: Male

DRUGS (13)
  1. RASILEZ [Suspect]
     Indication: HYPERTENSION
     Dosage: 150 MG, QD
     Route: 048
     Dates: start: 20090901, end: 20100108
  2. ZYLORIC [Concomitant]
  3. DIOVAN [Concomitant]
  4. EUCREAS [Concomitant]
     Indication: DIABETES MELLITUS
     Dosage: 100/50 (UNITS NOT SPECIFIED)
  5. ADIRO [Concomitant]
  6. OMEPRAZOLE [Concomitant]
  7. OMACOR [Concomitant]
  8. ESCITALOPRAM [Concomitant]
  9. IDALPREM [Concomitant]
  10. EZETROL [Concomitant]
     Dosage: UNK
  11. LESCOL [Concomitant]
  12. NEBIVOLOL HCL [Concomitant]
  13. SUTRIL [Concomitant]
     Dosage: UNK
     Dates: start: 20090901

REACTIONS (17)
  - ANAEMIA [None]
  - ASTHENIA [None]
  - DECREASED APPETITE [None]
  - DRUG RASH WITH EOSINOPHILIA AND SYSTEMIC SYMPTOMS [None]
  - ELECTROCARDIOGRAM T WAVE ABNORMAL [None]
  - EOSINOPHIL COUNT INCREASED [None]
  - ERYTHEMA [None]
  - GAIT DISTURBANCE [None]
  - HYPERKALAEMIA [None]
  - INFECTION [None]
  - MYALGIA [None]
  - PEMPHIGOID [None]
  - PRURITUS [None]
  - RASH GENERALISED [None]
  - RASH PAPULAR [None]
  - RENAL FAILURE ACUTE [None]
  - SKIN LESION [None]
